FAERS Safety Report 6450018-2 (Version None)
Quarter: 2009Q4

REPORT INFORMATION
  Report Type: 
  Country: None (occurrence: None)
  Receive Date: 20091123
  Receipt Date: 20091112
  Transmission Date: 20100525
  Serious: No
  Sender: FDA-Public Use
  Company Number: US-JNJFOC-20091104530

PATIENT
  Sex: Female
  Weight: 79.38 kg

DRUGS (3)
  1. DURAGESIC-100 [Suspect]
     Indication: NEURALGIA
     Route: 062
     Dates: start: 20030101, end: 20091101
  2. DURAGESIC-100 [Suspect]
     Route: 062
     Dates: start: 20091101
  3. UNKNOWN MEDICATION [Concomitant]
     Route: 065

REACTIONS (3)
  - INCORRECT DRUG ADMINISTRATION DURATION [None]
  - PRODUCT ADHESION ISSUE [None]
  - WRONG TECHNIQUE IN DRUG USAGE PROCESS [None]
